FAERS Safety Report 6968140-0 (Version None)
Quarter: 2010Q3

REPORT INFORMATION
  Report Type: 
  Country: None (occurrence: None)
  Receive Date: 20100907
  Receipt Date: 20100901
  Transmission Date: 20110219
  Serious: Yes (Hospitalization)
  Sender: FDA-Public Use
  Company Number: B0672275A

PATIENT
  Sex: Male

DRUGS (12)
  1. ARIXTRA [Suspect]
     Indication: ERYSIPELAS
     Route: 058
     Dates: start: 20100723, end: 20100724
  2. AUGMENTIN '125' [Suspect]
     Indication: SINUSITIS
     Dosage: 3G CUMULATIVE DOSE
     Route: 048
     Dates: start: 20100722, end: 20100723
  3. PYOSTACINE [Suspect]
     Indication: ERYSIPELAS
     Dosage: 3G CUMULATIVE DOSE
     Route: 048
     Dates: start: 20100723, end: 20100724
  4. SOLUPRED [Suspect]
     Indication: SINUSITIS
     Dosage: 20MG TWICE PER DAY
     Route: 048
     Dates: start: 20100722, end: 20100723
  5. PIVALONE [Suspect]
     Indication: SINUSITIS
     Route: 045
     Dates: start: 20100722, end: 20100723
  6. ACUILIX [Concomitant]
     Dosage: 1TAB PER DAY
     Route: 048
     Dates: end: 20100725
  7. BISOPROLOL FUMARATE [Concomitant]
     Route: 065
  8. FLECAINIDE ACETATE [Concomitant]
     Route: 065
  9. LESCOL [Concomitant]
     Route: 065
  10. KARDEGIC [Concomitant]
     Route: 065
  11. AMLODIPINE [Concomitant]
     Route: 065
  12. ALFUZOSIN HCL [Concomitant]
     Route: 065

REACTIONS (1)
  - RASH MACULO-PAPULAR [None]
